FAERS Safety Report 14798798 (Version 3)
Quarter: 2018Q2

REPORT INFORMATION
  Report Type: Report from Study
  Country: HR (occurrence: HR)
  Receive Date: 20180424
  Receipt Date: 20180509
  Transmission Date: 20180711
  Serious: Yes (Hospitalization)
  Sender: FDA-Public Use
  Company Number: HR-ROCHE-2107426

PATIENT
  Age: 29 Year
  Sex: Female
  Weight: 43.8 kg

DRUGS (4)
  1. CHLOROPYRAMINUM [Concomitant]
     Dosage: 20/FEB/2018
     Route: 030
     Dates: start: 20180206
  2. METHYLPREDNISOLONE. [Suspect]
     Active Substance: METHYLPREDNISOLONE
     Indication: PREMEDICATION
     Dosage: 20/FEB/2018
     Route: 042
     Dates: start: 20180206
  3. PARACETAMOL [Concomitant]
     Active Substance: ACETAMINOPHEN
     Dosage: 20/FEB/2018
     Route: 048
     Dates: start: 20180206
  4. OCRELIZUMAB. [Suspect]
     Active Substance: OCRELIZUMAB
     Indication: RELAPSING-REMITTING MULTIPLE SCLEROSIS
     Dosage: TWO 300 MG INFUSIONS ON DAYS 1 AND 15, FOLLOWED BY ONE 600 MG INFUSION DOSE EVERY 24 WEEKS FOR A MAX
     Route: 042
     Dates: start: 20180206

REACTIONS (1)
  - Urinary tract infection [Recovered/Resolved]

NARRATIVE: CASE EVENT DATE: 20180404
